FAERS Safety Report 4315900-0 (Version None)
Quarter: 2004Q1

REPORT INFORMATION
  Report Type: 
  Country: None (occurrence: None)
  Receive Date: 20040310
  Receipt Date: 20040224
  Transmission Date: 20041129
  Serious: Yes (Death, Hospitalization)
  Sender: FDA-Public Use
  Company Number: PERI00204000522

PATIENT
  Age: 76 Year
  Sex: Male

DRUGS (11)
  1. COVERSYL (PERINDOPRIL) [Suspect]
     Indication: ILL-DEFINED DISORDER
     Dosage: 4 MG DAILY PO
     Route: 048
     Dates: end: 20040112
  2. ALDACTONE [Suspect]
     Indication: ILL-DEFINED DISORDER
     Dosage: 12.5 MG QD PO
     Route: 048
     Dates: end: 20040112
  3. LOVENOX [Suspect]
     Indication: ILL-DEFINED DISORDER
     Dosage: 1 DF QD SC
     Route: 058
     Dates: start: 20040112, end: 20040120
  4. AUGMENTIN '125' [Suspect]
     Indication: ILL-DEFINED DISORDER
     Dosage: 1 G BID IV
     Route: 042
     Dates: start: 20040112, end: 20040117
  5. CORDARONE [Suspect]
     Indication: ILL-DEFINED DISORDER
     Dosage: 200 MG DAILY PO
     Route: 048
     Dates: end: 20040125
  6. CARVEDILOL [Suspect]
     Indication: ILL-DEFINED DISORDER
     Dosage: 12.5 MG BID PO
     Route: 048
     Dates: end: 20040112
  7. LASIX [Concomitant]
  8. LEVOTHYROXINE SODIUM [Concomitant]
  9. DIAFUSON (ETIDRONIC ACID) [Concomitant]
  10. LORAZEPAM [Concomitant]
  11. ACETAMINOPHEN [Concomitant]

REACTIONS (6)
  - BONE PAIN [None]
  - BRONCHIAL INFECTION [None]
  - GENERAL PHYSICAL HEALTH DETERIORATION [None]
  - HEPATIC FAILURE [None]
  - HYPOTENSION [None]
  - MULTIPLE MYELOMA [None]
